FAERS Safety Report 13163273 (Version 4)
Quarter: 2017Q3

REPORT INFORMATION
  Report Type: Report from Study
  Country: US (occurrence: US)
  Receive Date: 20170130
  Receipt Date: 20170907
  Transmission Date: 20171127
  Serious: Yes (Hospitalization, Other)
  Sender: FDA-Public Use
  Company Number: PHEH2017US002984

PATIENT
  Age: 31 Year
  Sex: Male

DRUGS (2)
  1. AFINITOR [Suspect]
     Active Substance: EVEROLIMUS
     Dosage: UNK
     Route: 048
  2. AFINITOR [Suspect]
     Active Substance: EVEROLIMUS
     Indication: ANGIOMYOLIPOMA
     Dosage: 5 MG, QD
     Route: 048
     Dates: start: 20161121

REACTIONS (6)
  - Arthritis infective [Recovered/Resolved]
  - Diarrhoea [Unknown]
  - Malaise [Unknown]
  - Oral pain [Unknown]
  - Glossodynia [Unknown]
  - Colitis [Not Recovered/Not Resolved]

NARRATIVE: CASE EVENT DATE: 20161121
